FAERS Safety Report 5399060-3 (Version None)
Quarter: 2007Q3

REPORT INFORMATION
  Report Type: 
  Country: None (occurrence: None)
  Receive Date: 20070725
  Receipt Date: 20070725
  Transmission Date: 20080115
  Serious: Yes (Hospitalization)
  Sender: FDA-Public Use
  Company Number: None

PATIENT
  Age: 73 Year
  Sex: Male
  Weight: 91.9 kg

DRUGS (1)
  1. TERAZOSIN HCL [Suspect]

REACTIONS (3)
  - BRADYCARDIA [None]
  - ORTHOSTATIC HYPOTENSION [None]
  - SYNCOPE [None]
